FAERS Safety Report 4566768-9 (Version None)
Quarter: 2005Q1

REPORT INFORMATION
  Report Type: 
  Country: None (occurrence: None)
  Receive Date: 20050201
  Receipt Date: 20011002
  Transmission Date: 20050727
  Serious: Yes (Other)
  Sender: FDA-Public Use
  Company Number: US-BRISTOL-MYERS SQUIBB COMPANY-11530862

PATIENT
  Age: 50 Year
  Sex: Female

DRUGS (2)
  1. STADOL [Suspect]
     Indication: MIGRAINE
     Route: 045
     Dates: start: 20010802, end: 20030101
  2. STADOL [Suspect]
     Indication: MIGRAINE
     Route: 030
     Dates: start: 20010101

REACTIONS (4)
  - CHEST PAIN [None]
  - DEPENDENCE [None]
  - HEART RATE IRREGULAR [None]
  - HYPOAESTHESIA [None]
